FAERS Safety Report 6762089-4 (Version None)
Quarter: 2010Q2

REPORT INFORMATION
  Report Type: 
  Country: None (occurrence: None)
  Receive Date: 20100520
  Receipt Date: 20100514
  Transmission Date: 20101027
  Serious: Yes (Hospitalization)
  Sender: FDA-Public Use
  Company Number: 2010023105

PATIENT
  Sex: Female

DRUGS (1)
  1. VIVAGLOBIN [Suspect]
     Indication: BLOOD IMMUNOGLOBULIN G DECREASED
     Dates: start: 20100201

REACTIONS (6)
  - EMOTIONAL DISORDER [None]
  - INFUSION SITE ERYTHEMA [None]
  - INFUSION SITE PAIN [None]
  - INFUSION SITE REACTION [None]
  - INFUSION SITE SWELLING [None]
  - INJECTION SITE PRURITUS [None]
